FAERS Safety Report 5088843-5 (Version None)
Quarter: 2006Q3

REPORT INFORMATION
  Report Type: 
  Country: None (occurrence: None)
  Receive Date: 20060824
  Receipt Date: 20060824
  Transmission Date: 20061208
  Serious: No
  Sender: FDA-Public Use
  Company Number: None

PATIENT
  Age: 59 Year
  Sex: Male
  Weight: 76.6579 kg

DRUGS (3)
  1. TOPAMAX [Suspect]
     Indication: HEADACHE
     Dosage: 1 AT NIGHT
     Dates: start: 20050101
  2. TOPAMAX [Suspect]
     Indication: OFF LABEL USE
     Dosage: 1 AT NIGHT
     Dates: start: 20050101
  3. TOPAMAX [Suspect]
     Indication: PROPHYLAXIS
     Dosage: 1 AT NIGHT
     Dates: start: 20050101

REACTIONS (2)
  - LOOSE TOOTH [None]
  - OFF LABEL USE [None]
